FAERS Safety Report 14532168 (Version 2)
Quarter: 2020Q1

REPORT INFORMATION
  Report Type: Report from Study
  Country: CA (occurrence: CA)
  Receive Date: 20180214
  Receipt Date: 20200306
  Transmission Date: 20200409
  Serious: Yes (Hospitalization)
  Sender: FDA-Public Use
  Company Number: CA-ACTELION-A-US2018-167241

PATIENT
  Age: 47 Year
  Sex: Female

DRUGS (16)
  1. WARFARIN [Concomitant]
     Active Substance: WARFARIN
  2. ATORVASTATIN [Concomitant]
     Active Substance: ATORVASTATIN
  3. LANSOPRAZOLE. [Concomitant]
     Active Substance: LANSOPRAZOLE
  4. ZINC. [Concomitant]
     Active Substance: ZINC
  5. TOLOXIN [Concomitant]
     Active Substance: DIGOXIN
  6. REVATIO [Concomitant]
     Active Substance: SILDENAFIL CITRATE
  7. GABAPENTIN. [Concomitant]
     Active Substance: GABAPENTIN
  8. CARIPUL [Suspect]
     Active Substance: EPOPROSTENOL
     Indication: PULMONARY ARTERIAL HYPERTENSION
     Dosage: 4.5 MG/24 HRS
     Route: 042
     Dates: start: 20160629
  9. HYDROMORPH [Concomitant]
     Active Substance: HYDROMORPHONE
  10. REPLAVITE [Concomitant]
  11. ACETAMINOPHEN. [Concomitant]
     Active Substance: ACETAMINOPHEN
  12. MIDODRINE [Concomitant]
     Active Substance: MIDODRINE
  13. SENOKOT [Concomitant]
     Active Substance: SENNOSIDES
  14. IRON [Concomitant]
     Active Substance: IRON
  15. VITAMIN D [Concomitant]
     Active Substance: VITAMIN D NOS
  16. DOCUSATE SODIUM. [Concomitant]
     Active Substance: DOCUSATE SODIUM

REACTIONS (3)
  - Hypotension [Recovered/Resolved]
  - Hospitalisation [Unknown]
  - Unresponsive to stimuli [Recovered/Resolved]

NARRATIVE: CASE EVENT DATE: 20180201
